FAERS Safety Report 7706563-2 (Version None)
Quarter: 2011Q3

REPORT INFORMATION
  Report Type: 
  Country: None (occurrence: None)
  Receive Date: 20110804
  Receipt Date: 20110627
  Transmission Date: 20111222
  Serious: No
  Sender: FDA-Public Use
  Company Number: 2011-09682

PATIENT
  Age: 90 Year
  Sex: Male
  Weight: 82.1 kg

DRUGS (2)
  1. RAPAFLO [Suspect]
     Indication: POLLAKIURIA
     Dosage: 8 MG, DAILY, ORAL, 8 MG, DAILY, ORAL
     Route: 048
     Dates: start: 20110501
  2. RAPAFLO [Suspect]
     Indication: POLLAKIURIA
     Dosage: 8 MG, DAILY, ORAL, 8 MG, DAILY, ORAL
     Route: 048
     Dates: start: 20100901, end: 20110501

REACTIONS (1)
  - DRUG INEFFECTIVE [None]
